FAERS Safety Report 9848827 (Version 2)
Quarter: 2014Q4

REPORT INFORMATION
  Report Type: Report from Study
  Country: BR (occurrence: BR)
  Receive Date: 20140128
  Receipt Date: 20141003
  Transmission Date: 20150529
  Serious: Yes (Hospitalization, Other)
  Sender: FDA-Public Use
  Company Number: PHHY2014BR008484

PATIENT
  Age: 59 Year
  Sex: Male
  Weight: 83 kg

DRUGS (2)
  1. DIUPRESS [Concomitant]
     Dosage: UNK UKN, UNK
  2. DIOVAN [Suspect]
     Active Substance: VALSARTAN
     Indication: HYPERTENSION
     Dosage: 160 MG, DAILY

REACTIONS (7)
  - Pituitary tumour benign [Unknown]
  - Arthralgia [Recovered/Resolved]
  - Prothrombin time abnormal [Recovered/Resolved]
  - Acromegaly [Unknown]
  - Blood disorder [Recovered/Resolved]
  - Cartilage injury [Recovered/Resolved]
  - Bone disorder [Unknown]

NARRATIVE: CASE EVENT DATE: 201107
